FAERS Safety Report 19125832 (Version 2)
Quarter: 2021Q2

REPORT INFORMATION
  Report Type: Spontaneous
  Country: JP (occurrence: JP)
  Receive Date: 20210413
  Receipt Date: 20210419
  Transmission Date: 20210717
  Serious: Yes (Death, Hospitalization, Other)
  Sender: FDA-Public Use
  Company Number: JP-GLAXOSMITHKLINE-JP2021079617

PATIENT
  Age: 7 Decade
  Sex: Female

DRUGS (2)
  1. LIXIANA [Concomitant]
     Active Substance: EDOXABAN TOSYLATE
     Indication: PRODUCT USED FOR UNKNOWN INDICATION
     Dosage: UNK
     Route: 065
  2. ZEJULA [Suspect]
     Active Substance: NIRAPARIB
     Indication: OVARIAN CANCER RECURRENT
     Dosage: 200 MILLIGRAM
     Route: 048
     Dates: start: 202103, end: 202103

REACTIONS (3)
  - Disease progression [Fatal]
  - General physical health deterioration [Fatal]
  - Ovarian cancer recurrent [Fatal]

NARRATIVE: CASE EVENT DATE: 202103
